FAERS Safety Report 5180943-4 (Version None)
Quarter: 2006Q4

REPORT INFORMATION
  Report Type: 
  Country: None (occurrence: None)
  Receive Date: 20061215
  Receipt Date: 20061215
  Transmission Date: 20070319
  Serious: No
  Sender: FDA-Public Use
  Company Number: None

PATIENT

DRUGS (2)
  1. ORHRO-TRICYCLENE [Suspect]
  2. ORTHRO-TRICYCLENE LO [Suspect]

REACTIONS (1)
  - PREGNANCY ON ORAL CONTRACEPTIVE [None]
